FAERS Safety Report 5328839-9 (Version None)
Quarter: 2007Q2

REPORT INFORMATION
  Report Type: 
  Country: None (occurrence: None)
  Receive Date: 20070518
  Receipt Date: 20070508
  Transmission Date: 20071010
  Serious: Yes (Hospitalization)
  Sender: FDA-Public Use
  Company Number: GB-ELI_LILLY_AND_COMPANY-GB200705001968

PATIENT
  Age: 45 Year
  Sex: Male
  Weight: 91 kg

DRUGS (10)
  1. CIALIS [Suspect]
     Indication: ERECTILE DYSFUNCTION
     Dosage: 20 MG, UNK
     Route: 048
     Dates: start: 20070305
  2. ATENOLOL [Concomitant]
     Dosage: 50 MG, DAILY (1/D)
     Route: 048
  3. DIHYDROCODEINE BITARTRATE INJ [Concomitant]
     Indication: PAIN
     Dosage: 30 ML, 4/D
     Route: 048
     Dates: start: 20060302
  4. LACTULOSE [Concomitant]
     Indication: CONSTIPATION
     Dosage: 10 ML, 2/D
     Route: 048
     Dates: start: 20060920
  5. LANTUS [Concomitant]
  6. NOVORAPID [Concomitant]
  7. PARACETAMOL [Concomitant]
     Dosage: 1000 MG, 4/D
     Route: 048
  8. PREGABALIN [Concomitant]
     Indication: NEURALGIA
     Dosage: 225 MG, 2/D
     Route: 048
     Dates: start: 20060920
  9. SIMVASTATIN [Concomitant]
     Dosage: 40 MG, DAILY (1/D)
     Route: 048
  10. TRAMADOL HCL [Concomitant]
     Dosage: 200 MG, 2/D
     Route: 048

REACTIONS (2)
  - BLINDNESS [None]
  - VISION BLURRED [None]
